FAERS Safety Report 9300370 (Version 1)
Quarter: 2013Q1

REPORT INFORMATION
  Report Type: Spontaneous
  Country: US (occurrence: None)
  Receive Date: 20130107
  Receipt Date: 20130107
  Transmission Date: 20140127
  Serious: Yes (Hospitalization)
  Sender: FDA-Public Use
  Company Number: PHEH2012US017330

PATIENT
  Age: 55 Year
  Sex: Female
  Weight: 79.4 kg

DRUGS (6)
  1. GILENYA (FTY) CAPSULE, 0.5MG [Suspect]
     Indication: RELAPSING-REMITTING MULTIPLE SCLEROSIS
     Route: 048
  2. CYMBALTA (DULOXETINE HYDROCHLORIDE) [Concomitant]
  3. AMBIEN (ZOLPIDEM TARTRATE) [Concomitant]
  4. TYLENOL (PARACETAMOL) [Concomitant]
  5. EXCEDRIN P.M. (DIPHYENHYDRAMINE CITRATE PARACETAMOL) [Concomitant]
  6. VESICARE (SOLIFENACIN SUCCINATE) [Concomitant]

REACTIONS (12)
  - Multiple sclerosis relapse [None]
  - Micturition urgency [None]
  - Injury [None]
  - Fall [None]
  - Headache [None]
  - Vision blurred [None]
  - Memory impairment [None]
  - Disturbance in attention [None]
  - Paraesthesia [None]
  - Hypoaesthesia [None]
  - Pain in extremity [None]
  - Feeling abnormal [None]
